FAERS Safety Report 13178015 (Version 1)
Quarter: 2017Q1

REPORT INFORMATION
  Report Type: Spontaneous
  Country: US (occurrence: US)
  Receive Date: 20170201
  Receipt Date: 20170201
  Transmission Date: 20170428
  Serious: Yes (Hospitalization)
  Sender: FDA-Public Use
  Company Number: None

PATIENT
  Age: 61 Year
  Sex: Male
  Weight: 100.5 kg

DRUGS (2)
  1. GABAPENTIN. [Suspect]
     Active Substance: GABAPENTIN
     Indication: OCCIPITAL NEURALGIA
     Route: 048
     Dates: start: 20161122, end: 20161123
  2. GABAPENTIN. [Suspect]
     Active Substance: GABAPENTIN
     Indication: MIGRAINE
     Route: 048
     Dates: start: 20161122, end: 20161123

REACTIONS (3)
  - Anxiety [None]
  - Tremor [None]
  - Feeling abnormal [None]

NARRATIVE: CASE EVENT DATE: 20161123
